FAERS Safety Report 19579540 (Version 4)
Quarter: 2022Q2

REPORT INFORMATION
  Report Type: Spontaneous
  Country: US (occurrence: US)
  Receive Date: 20210719
  Receipt Date: 20220420
  Transmission Date: 20220721
  Serious: No
  Sender: FDA-Public Use
  Company Number: US-PFIZER INC-2021298656

PATIENT
  Age: 77 Year
  Sex: Female
  Weight: 63.5 kg

DRUGS (1)
  1. LYRICA CR [Suspect]
     Active Substance: PREGABALIN
     Indication: Pain
     Dosage: 330 MG, 2X/DAY (TAKE 1 TAB TWO TIMES A DAY FOR 90 DAYS)
     Route: 048

REACTIONS (4)
  - Abdominal pain upper [Unknown]
  - Ulcer [Unknown]
  - Off label use [Unknown]
  - Recalled product administered [Unknown]
